FAERS Safety Report 20626369 (Version 1)
Quarter: 2022Q1

REPORT INFORMATION
  Report Type: Spontaneous
  Country: FR (occurrence: FR)
  Receive Date: 20220323
  Receipt Date: 20220323
  Transmission Date: 20220423
  Serious: Yes (Death)
  Sender: FDA-Public Use
  Company Number: None

PATIENT
  Age: 49 Year
  Sex: Male

DRUGS (11)
  1. BUPRENORPHINE [Suspect]
     Active Substance: BUPRENORPHINE
     Route: 065
  2. BROMAZEPAM [Concomitant]
     Active Substance: BROMAZEPAM
  3. MIRTAZAPINE [Concomitant]
     Active Substance: MIRTAZAPINE
  4. DIAZEPAM [Concomitant]
     Active Substance: DIAZEPAM
  5. CANNABIS SATIVA SUBSP. INDICA TOP [Concomitant]
     Active Substance: CANNABIS SATIVA SUBSP. INDICA TOP
  6. HYDROXYZINE HYDROCHLORIDE [Concomitant]
     Active Substance: HYDROXYZINE HYDROCHLORIDE
  7. OLANZAPINE [Concomitant]
     Active Substance: OLANZAPINE
  8. CODEINE [Concomitant]
     Active Substance: CODEINE
  9. PREGABALIN [Concomitant]
     Active Substance: PREGABALIN
  10. MORPHINE [Concomitant]
     Active Substance: MORPHINE
  11. CETIRIZINE DICHLORHYDRATE [Concomitant]

REACTIONS (3)
  - Poisoning [Fatal]
  - Drowning [Fatal]
  - Brain oedema [Fatal]
